FAERS Safety Report 6619244-3 (Version None)
Quarter: 2010Q1

REPORT INFORMATION
  Report Type: 
  Country: None (occurrence: None)
  Receive Date: 20100304
  Receipt Date: 20100215
  Transmission Date: 20100710
  Serious: Yes (Other)
  Sender: FDA-Public Use
  Company Number: THYM-1001287

PATIENT
  Age: 49 Year

DRUGS (4)
  1. THYMOGLOBULIN [Suspect]
     Indication: SCLERODERMA
     Dosage: 2.5 MG/KG,QD
     Dates: start: 20091105
  2. THYMOGLOBULIN [Suspect]
     Indication: STEM CELL TRANSPLANT
     Dosage: 2.5 MG/KG,QD
     Dates: start: 20091105
  3. SOLU-MEDROL [Concomitant]
  4. TAVEGIL (CLEMASTINE FUMARATE) [Concomitant]

REACTIONS (3)
  - CYTOKINE RELEASE SYNDROME [None]
  - PHARYNGEAL OEDEMA [None]
  - URTICARIA [None]
